FAERS Safety Report 15642532 (Version 1)
Quarter: 2018Q4

REPORT INFORMATION
  Report Type: Spontaneous
  Country: NL (occurrence: NL)
  Receive Date: 20181121
  Receipt Date: 20181121
  Transmission Date: 20190205
  Serious: Yes (Other)
  Sender: FDA-Public Use
  Company Number: NL-AUROBINDO-AUR-APL-2018-056085

PATIENT
  Age: 68 Year
  Sex: Female

DRUGS (4)
  1. MIRTAZAPINE FILM-COATED TABLET [Suspect]
     Active Substance: MIRTAZAPINE
     Indication: SLEEP DISORDER
     Dosage: 0.5 DOSAGE FORM, DAILY
     Route: 048
     Dates: start: 20130711
  2. COLECALCIFEROL [Concomitant]
     Active Substance: CHOLECALCIFEROL
     Indication: VITAMIN D DEFICIENCY
     Dosage: 800 INTERNATIONAL UNIT, DAILY
     Route: 065
  3. TRANYLCYPROMINE [Interacting]
     Active Substance: TRANYLCYPROMINE
     Indication: DEPRESSION
     Dosage: 40 MILLIGRAM, EVERY 2 DAYS
     Route: 065
     Dates: start: 2005
  4. LORAZEPAM. [Concomitant]
     Active Substance: LORAZEPAM
     Indication: TENSION
     Dosage: 0.5 DOSAGE FORM, DAILY
     Route: 048
     Dates: start: 20130711

REACTIONS (4)
  - Prescribed overdose [Not Recovered/Not Resolved]
  - Contraindicated product administered [Not Recovered/Not Resolved]
  - Nephropathy toxic [Unknown]
  - Insomnia [Not Recovered/Not Resolved]

NARRATIVE: CASE EVENT DATE: 1994
